FAERS Safety Report 4329189-X (Version None)
Quarter: 2004Q1

REPORT INFORMATION
  Report Type: 
  Country: None (occurrence: None)
  Receive Date: 20040329
  Receipt Date: 20031229
  Transmission Date: 20041129
  Serious: No
  Sender: FDA-Public Use
  Company Number: 03P-163-0245814-00

PATIENT
  Age: 62 Year
  Sex: Female

DRUGS (10)
  1. HUMIRA [Suspect]
     Indication: RHEUMATOID ARTHRITIS
     Dosage: 40 MG, 1 IN 2 WK, SUBCUTANEOUS
     Route: 058
     Dates: start: 20031001
  2. METHOTREXATE [Concomitant]
  3. METFORMIN HCL [Concomitant]
  4. TRAZODONE HCL [Concomitant]
  5. BUPROPION HYDOCHLORIDE [Concomitant]
  6. ATORVASTATIN [Concomitant]
  7. ULTRACET [Concomitant]
  8. VERAPAMIL [Concomitant]
  9. LISINOPRIL [Concomitant]
  10. FOLIC ACID [Concomitant]

REACTIONS (1)
  - INJECTION SITE BURNING [None]
